FAERS Safety Report 4636308-4 (Version None)
Quarter: 2005Q2

REPORT INFORMATION
  Report Type: 
  Country: None (occurrence: None)
  Receive Date: 20050415
  Receipt Date: 20040813
  Transmission Date: 20051028
  Serious: No
  Sender: FDA-Public Use
  Company Number: US-BRISTOL-MYERS SQUIBB COMPANY-12676516

PATIENT
  Age: 57 Year
  Sex: Female

DRUGS (5)
  1. CARBOPLATIN [Suspect]
     Indication: OVARIAN CANCER
     Dosage: THERAPY DATES: 06-SEP-2001 TO 11-JUN-2004 AUC=6
     Route: 042
     Dates: start: 20040611, end: 20040611
  2. DOCETAXEL [Concomitant]
     Indication: OVARIAN CANCER
     Dosage: 35 MG/M2  OVER 1 HOUR INFUSION
     Route: 042
     Dates: start: 20040430, end: 20040611
  3. DIPHENHYDRAMINE HCL [Concomitant]
     Indication: PREMEDICATION
     Route: 042
     Dates: start: 20040611, end: 20040611
  4. ONDANSETRON [Concomitant]
     Indication: PREMEDICATION
     Route: 042
     Dates: start: 20040611, end: 20040611
  5. DEXAMETHASONE [Concomitant]
     Indication: PREMEDICATION
     Dosage: 8 MG ORALLY TWICE DAILY FOR 3 DAYS PRIOR TO CHEMO
     Route: 042
     Dates: start: 20040611, end: 20040611

REACTIONS (2)
  - ORAL PRURITUS [None]
  - PRURITUS [None]
